FAERS Safety Report 21617098 (Version 2)
Quarter: 2023Q1

REPORT INFORMATION
  Report Type: Report from Study
  Country: AU (occurrence: AU)
  Receive Date: 20221118
  Receipt Date: 20230202
  Transmission Date: 20230418
  Serious: Yes (Congenital Anomaly)
  Sender: FDA-Public Use
  Company Number: AU-BIOGEN-2022BI01170206

PATIENT
  Age: 0 Year
  Sex: Male
  Weight: 3.55 kg

DRUGS (2)
  1. TECFIDERA [Suspect]
     Active Substance: DIMETHYL FUMARATE
     Indication: Maternal exposure timing unspecified
     Route: 050
     Dates: start: 20140625
  2. TECFIDERA [Suspect]
     Active Substance: DIMETHYL FUMARATE
     Dosage: MAINTENANCE DOSE
     Route: 050
     Dates: start: 20140625, end: 20181212

REACTIONS (2)
  - Renal aplasia [Not Recovered/Not Resolved]
  - Foetal exposure during pregnancy [Recovered/Resolved]

NARRATIVE: CASE EVENT DATE: 20190826
